FAERS Safety Report 10957137 (Version 2)
Quarter: 2015Q1

REPORT INFORMATION
  Report Type: Spontaneous
  Country: US (occurrence: None)
  Receive Date: 20150226
  Receipt Date: 20150226
  Transmission Date: 20150721
  Serious: Yes (Other)
  Sender: FDA-Public Use
  Company Number: TPA2012A02972

PATIENT
  Age: 72 Year
  Sex: Male
  Weight: 102.06 kg

DRUGS (5)
  1. ACTOPLUS MET [Suspect]
     Active Substance: METFORMIN HYDROCHLORIDE\PIOGLITAZONE HYDROCHLORIDE
     Indication: TYPE 2 DIABETES MELLITUS
     Dates: start: 20070505, end: 20111104
  2. GLUCOTROL [Concomitant]
     Active Substance: GLIPIZIDE
  3. TRADJENTA (LINAGLIPTIN) [Concomitant]
  4. METFORMIN [Suspect]
     Active Substance: METFORMIN HYDROCHLORIDE
  5. LANTUS (INSULING GLARGINE) [Concomitant]

REACTIONS (3)
  - Bladder transitional cell carcinoma [None]
  - Bladder cancer [None]
  - Bladder transitional cell carcinoma recurrent [None]

NARRATIVE: CASE EVENT DATE: 20090612
